FAERS Safety Report 7679922-4 (Version None)
Quarter: 2011Q3

REPORT INFORMATION
  Report Type: 
  Country: None (occurrence: None)
  Receive Date: 20110812
  Receipt Date: 20110809
  Transmission Date: 20111222
  Serious: Yes (Death, Other)
  Sender: FDA-Public Use
  Company Number: FR-PFIZER INC-2011182063

PATIENT
  Age: 54 Year
  Sex: Male

DRUGS (15)
  1. UN-ALFA [Suspect]
     Dosage: 0.25 UG WEEKLY IN 3 DOSES
     Route: 048
  2. OROCAL [Concomitant]
  3. SPAGULAX [Concomitant]
  4. PARACETAMOL [Concomitant]
  5. HEXAQUINE [Concomitant]
  6. VENOFER [Concomitant]
  7. ATORVASTATIN CALCIUM [Suspect]
     Dosage: 40 MG, 1X/DAY
     Route: 048
  8. DEDROGYL [Concomitant]
  9. VOGALENE [Concomitant]
  10. NEORECORMON ^BOEHRINGER MANNHEIM^ [Suspect]
     Dosage: 2000 IU WEEKLY IN 3 DOSES
     Route: 042
  11. KAYEXALATE [Suspect]
     Route: 048
  12. TRABECTEDIN [Suspect]
     Indication: CHEMOTHERAPY
     Dosage: 2.3 MG, SINGLE
     Route: 042
     Dates: start: 20110702, end: 20110702
  13. NEXIUM [Suspect]
     Dosage: 20 MG, 1X/DAY
     Route: 048
  14. EMLA [Concomitant]
  15. LEXOMIL [Concomitant]

REACTIONS (3)
  - CHEST PAIN [None]
  - MYALGIA [None]
  - SUDDEN DEATH [None]
